FAERS Safety Report 5351050-2 (Version None)
Quarter: 2007Q2

REPORT INFORMATION
  Report Type: 
  Country: None (occurrence: None)
  Receive Date: 20070608
  Receipt Date: 20070530
  Transmission Date: 20071010
  Serious: Yes (Disabling)
  Sender: FDA-Public Use
  Company Number: JP-ALLERGAN-0703213US

PATIENT
  Sex: Female

DRUGS (2)
  1. BOTOX INJECTION 100 [Suspect]
     Indication: FACIAL SPASM
     Dosage: 20 UNITS, UNK
     Route: 030
     Dates: start: 20060502, end: 20060502
  2. BOTOX INJECTION 100 [Suspect]
     Dosage: 15 UNITS, SINGLE
     Route: 030
     Dates: start: 20070319, end: 20070319

REACTIONS (1)
  - MYASTHENIA GRAVIS [None]
